FAERS Safety Report 11098995 (Version 1)
Quarter: 2015Q2

REPORT INFORMATION
  Report Type: Spontaneous
  Country: US (occurrence: US)
  Receive Date: 20150508
  Receipt Date: 20150508
  Transmission Date: 20150821
  Serious: No
  Sender: FDA-Public Use
  Company Number: US-ASTRAZENECA-2015SE41320

PATIENT
  Sex: Male

DRUGS (2)
  1. ATACAND HCT [Suspect]
     Active Substance: CANDESARTAN CILEXETIL\HYDROCHLOROTHIAZIDE
     Indication: BLOOD PRESSURE
     Dosage: 32 12.5 MG
     Route: 048
  2. ATACAND HCT [Suspect]
     Active Substance: CANDESARTAN CILEXETIL\HYDROCHLOROTHIAZIDE
     Indication: BLOOD PRESSURE
     Dosage: SPLIT THE TABLET TO MAKE 16/6.25 MG
     Route: 048

REACTIONS (4)
  - Adverse event [Unknown]
  - Pain in extremity [Unknown]
  - Intentional product misuse [Unknown]
  - Arthritis [Unknown]
